FAERS Safety Report 6794492-0 (Version None)
Quarter: 2010Q2

REPORT INFORMATION
  Report Type: 
  Country: None (occurrence: None)
  Receive Date: 20100625
  Receipt Date: 20100618
  Transmission Date: 20101027
  Serious: Yes (Other)
  Sender: FDA-Public Use
  Company Number: FR-PFIZER INC-2010076880

PATIENT
  Age: 42 Year
  Sex: Male

DRUGS (1)
  1. TAHOR [Suspect]
     Indication: TYPE IIA HYPERLIPIDAEMIA
     Dosage: 40 MG, UNK
     Dates: start: 20010504

REACTIONS (1)
  - ERECTILE DYSFUNCTION [None]
